FAERS Safety Report 8747454 (Version 2)
Quarter: 2012Q4

REPORT INFORMATION
  Report Type: 
  Country: FR (occurrence: FR)
  Receive Date: 20120827
  Receipt Date: 20120924
  Transmission Date: 20130627
  Serious: No
  Sender: FDA-Public Use
  Company Number: FR-PFIZER INC-2012203290

PATIENT
  Age: 35 Year
  Sex: Male
  Weight: 68 kg

DRUGS (1)
  1. VIAGRA [Suspect]
     Dosage: 1 DF, single
     Dates: start: 20120630, end: 20120630

REACTIONS (1)
  - Penis injury [Recovered/Resolved]
